FAERS Safety Report 7705756-8 (Version None)
Quarter: 2011Q3

REPORT INFORMATION
  Report Type: 
  Country: None (occurrence: None)
  Receive Date: 20110824
  Receipt Date: 20110817
  Transmission Date: 20111222
  Serious: Yes (Hospitalization)
  Sender: FDA-Public Use
  Company Number: US-SANOFI-AVENTIS-2011SA043796

PATIENT
  Age: 84 Year
  Sex: Female
  Weight: 62.6 kg

DRUGS (11)
  1. POTASSIUM [Concomitant]
     Route: 048
  2. NOVOLOG [Concomitant]
     Dosage: 10 UNITS AM, 10 UNITS NOON, 10 UNITS HS DOSE:10 UNIT(S)
  3. LISINOPRIL [Concomitant]
     Route: 048
  4. LANTUS [Suspect]
     Indication: TYPE 2 DIABETES MELLITUS
     Dosage: 40 UNITS IN THE AM AND 27 UNITS IN THE PM
     Route: 058
  5. ADVAIR DISKUS 100/50 [Concomitant]
     Indication: ASTHMA
     Dosage: DOSAGE: 100/50 DOSE:2 PUFF(S)
     Route: 055
     Dates: start: 20060101
  6. NEXIUM [Concomitant]
     Route: 048
  7. DIGOXIN [Concomitant]
     Route: 048
  8. CARVEDILOL [Concomitant]
     Dosage: TAKES 6.25 (UNITS NOT PROVIDED) TWICE A DAY
     Route: 048
  9. FUROSEMIDE [Concomitant]
     Route: 048
  10. ASPIRIN [Concomitant]
     Route: 048
  11. SIMAVASTATIN [Concomitant]
     Route: 048

REACTIONS (2)
  - LIPOMA [None]
  - DRUG ADMINISTRATION ERROR [None]
